FAERS Safety Report 11203471 (Version 1)
Quarter: 2015Q2

REPORT INFORMATION
  Report Type: Spontaneous
  Country: US (occurrence: US)
  Receive Date: 20150619
  Receipt Date: 20150619
  Transmission Date: 20150821
  Serious: Yes (Other)
  Sender: FDA-Public Use
  Company Number: US-ELI_LILLY_AND_COMPANY-US201506006260

PATIENT
  Sex: Female

DRUGS (2)
  1. PROZAC [Suspect]
     Active Substance: FLUOXETINE HYDROCHLORIDE
     Indication: DEPRESSION
     Route: 065
  2. PRENATAL VITAMINS                  /08195401/ [Concomitant]

REACTIONS (2)
  - Maternal exposure during pregnancy [Recovered/Resolved]
  - Premature rupture of membranes [Unknown]
